FAERS Safety Report 21166392 (Version 2)
Quarter: 2022Q4

REPORT INFORMATION
  Report Type: Spontaneous
  Country: CA (occurrence: None)
  Receive Date: 20220803
  Receipt Date: 20221108
  Transmission Date: 20230113
  Serious: Yes (Other)
  Sender: FDA-Public Use
  Company Number: 2022A271434

PATIENT
  Age: 31 Year
  Sex: Female

DRUGS (2)
  1. QUETIAPINE [Suspect]
     Active Substance: QUETIAPINE
     Indication: Schizoaffective disorder bipolar type
     Route: 048
     Dates: start: 20211231, end: 20220103
  2. LITHIUM [Concomitant]
     Active Substance: LITHIUM
     Route: 065

REACTIONS (7)
  - Altered state of consciousness [Recovered/Resolved]
  - Chest discomfort [Recovered/Resolved]
  - Euphoric mood [Recovered/Resolved]
  - Suicidal ideation [Recovered/Resolved]
  - Euphoric mood [Recovered/Resolved]
  - Palpitations [Recovered/Resolved]
  - Product substitution issue [Recovered/Resolved]

NARRATIVE: CASE EVENT DATE: 20211231
